FAERS Safety Report 6762877-4 (Version None)
Quarter: 2010Q2

REPORT INFORMATION
  Report Type: 
  Country: None (occurrence: None)
  Receive Date: 20100609
  Receipt Date: 20100531
  Transmission Date: 20101027
  Serious: Yes (Disabling, Other)
  Sender: FDA-Public Use
  Company Number: JP-ASTRAZENECA-2010SE24823

PATIENT
  Age: 60 Year
  Sex: Female

DRUGS (5)
  1. ARIMIDEX [Suspect]
     Indication: BREAST CANCER
     Route: 048
     Dates: start: 20070813
  2. NORVASC [Concomitant]
     Route: 048
     Dates: start: 20070101
  3. DIOVAN [Concomitant]
     Route: 048
     Dates: start: 20070101
  4. ASPIRIN [Concomitant]
     Route: 048
     Dates: start: 20070101
  5. ALLEGRA [Concomitant]
     Route: 048
     Dates: start: 20070101

REACTIONS (1)
  - MYASTHENIA GRAVIS [None]
